FAERS Safety Report 21755598 (Version 1)
Quarter: 2022Q4

REPORT INFORMATION
  Report Type: Spontaneous
  Country: US (occurrence: None)
  Receive Date: 20221220
  Receipt Date: 20221220
  Transmission Date: 20230113
  Serious: Yes (Hospitalization)
  Sender: FDA-Public Use
  Company Number: US-ROCHE-3222596

PATIENT
  Age: 9 Year
  Sex: Female
  Weight: 32.234 kg

DRUGS (1)
  1. XOFLUZA [Suspect]
     Active Substance: BALOXAVIR MARBOXIL
     Indication: Influenza
     Dosage: REPORTER STATED PATIENT WAS TAKING CHILD DOSE. ONE PILL IN BLISTER PACK IN EXCHANGE?START DATE: 04/O
     Route: 048

REACTIONS (9)
  - Hallucination [Recovered/Resolved]
  - Dizziness [Not Recovered/Not Resolved]
  - Gait disturbance [Recovered/Resolved]
  - Nightmare [Not Recovered/Not Resolved]
  - Mydriasis [Unknown]
  - Thinking abnormal [Not Recovered/Not Resolved]
  - Sensory loss [Recovered/Resolved]
  - Off label use [Unknown]
  - Flashback [Recovered/Resolved]

NARRATIVE: CASE EVENT DATE: 20220101
